FAERS Safety Report 7742189 (Version 4)
Quarter: 2013Q1

REPORT INFORMATION
  Report Type: Spontaneous
  Country: US (occurrence: US)
  Receive Date: 20101229
  Receipt Date: 20130125
  Transmission Date: 20140127
  Serious: Yes (Hospitalization)
  Sender: FDA-Public Use
  Company Number: US-BIOGENIDEC-2010BI044443

PATIENT
  Age: 43 Year
  Sex: Female
  Weight: 67 kg

DRUGS (7)
  1. TYSABRI [Suspect]
     Indication: MULTIPLE SCLEROSIS
     Route: 042
     Dates: start: 20070109, end: 20080104
  2. TYSABRI [Suspect]
     Indication: MULTIPLE SCLEROSIS
     Route: 042
     Dates: start: 20100623
  3. AMPYRA [Concomitant]
     Indication: MOBILITY DECREASED
     Route: 048
     Dates: start: 201007
  4. MIDRIN [Concomitant]
     Indication: MIGRAINE
  5. ZANAFLEX [Concomitant]
     Indication: MUSCLE SPASMS
  6. BENADRYL [Concomitant]
     Indication: PROPHYLAXIS
  7. TYLENOL [Concomitant]
     Indication: PROPHYLAXIS

REACTIONS (7)
  - Fatigue [Recovered/Resolved]
  - Muscle spasms [Recovered/Resolved]
  - Nausea [Recovered/Resolved]
  - Multiple sclerosis relapse [Recovered/Resolved]
  - Fatigue [Not Recovered/Not Resolved]
  - Hypersomnia [Recovered/Resolved]
  - Somnolence [Recovered/Resolved]
